FAERS Safety Report 25524412 (Version 1)
Quarter: 2025Q3

REPORT INFORMATION
  Report Type: Report from Study
  Country: BR (occurrence: BR)
  Receive Date: 20250707
  Receipt Date: 20250707
  Transmission Date: 20251021
  Serious: Yes (Hospitalization)
  Sender: BIOGEN
  Company Number: BR-BIOGEN-2025BI01315995

PATIENT
  Age: 45 Year
  Sex: Female

DRUGS (4)
  1. TYSABRI [Suspect]
     Active Substance: NATALIZUMAB
     Indication: Multiple sclerosis
     Route: 050
     Dates: start: 202410
  2. GABAPENTIN [Concomitant]
     Active Substance: GABAPENTIN
     Indication: Back pain
     Route: 050
     Dates: start: 202408
  3. DULOXETINE [Concomitant]
     Active Substance: DULOXETINE
     Indication: Anxiolytic therapy
     Route: 050
     Dates: start: 202408, end: 202411
  4. DULOXETINE [Concomitant]
     Active Substance: DULOXETINE
     Route: 050
     Dates: start: 202411

REACTIONS (4)
  - Malaise [Not Recovered/Not Resolved]
  - Loss of control of legs [Not Recovered/Not Resolved]
  - Aphasia [Not Recovered/Not Resolved]
  - Platelet count decreased [Unknown]

NARRATIVE: CASE EVENT DATE: 20250628
